FAERS Safety Report 10255597 (Version 1)
Quarter: 2014Q2

REPORT INFORMATION
  Report Type: Spontaneous
  Country: US (occurrence: US)
  Receive Date: 20140624
  Receipt Date: 20140624
  Transmission Date: 20141212
  Serious: No
  Sender: FDA-Public Use
  Company Number: US-B.I. PHARMACEUTICALS,INC./RIDGEFIELD-2014-BI-27449BP

PATIENT
  Age: 67 Year
  Sex: Female
  Weight: 104 kg

DRUGS (9)
  1. PRADAXA [Suspect]
     Indication: ATRIAL FIBRILLATION
     Dosage: 300 MG
     Route: 048
     Dates: start: 2013
  2. ISOSORBIDE MONONITRATE [Concomitant]
     Indication: ATRIAL FIBRILLATION
     Dosage: 30 MG
     Route: 048
  3. MAG-OXIDE [Concomitant]
     Dosage: 400 MG
     Route: 048
  4. DIGOXIN [Concomitant]
     Indication: ATRIAL FIBRILLATION
     Dosage: 0.125 MG
     Route: 048
  5. FUROSEMIDE [Concomitant]
     Dosage: 80 MG
     Route: 048
  6. METOPROLOL [Concomitant]
     Indication: HYPERTENSION
     Dosage: 100 MG
     Route: 048
  7. TEMAZEPAM [Concomitant]
     Indication: SLEEP DISORDER
     Dosage: 50 MG
     Route: 048
  8. HYDRALAZINE [Concomitant]
     Indication: CARDIAC DISORDER
     Dosage: 75 MG
     Route: 048
  9. DIVALPROEX [Concomitant]
     Indication: MENTAL DISORDER
     Dosage: 500 MG
     Route: 048

REACTIONS (1)
  - Back pain [Not Recovered/Not Resolved]
